FAERS Safety Report 26127317 (Version 2)
Quarter: 2025Q4

REPORT INFORMATION
  Report Type: Spontaneous
  Country: US (occurrence: US)
  Receive Date: 20251205
  Receipt Date: 20251210
  Transmission Date: 20260118
  Serious: Yes (Other)
  Sender: PURDUE
  Company Number: US-PURDUE-USA-2025-0322732

PATIENT
  Age: 38 Year
  Sex: Male

DRUGS (5)
  1. DEXTROAMPHETAMINE SACCHARATE, AMPHETAMINE ASPARTATE, DEXTROAMPHETAMINE [Suspect]
     Active Substance: AMPHETAMINE ASPARTATE\AMPHETAMINE SULFATE\DEXTROAMPHETAMINE SACCHARATE\DEXTROAMPHETAMINE SULFATE
     Indication: Attention deficit hyperactivity disorder
     Dosage: UNK
     Route: 048
  2. LAMOTRIGINE [Suspect]
     Active Substance: LAMOTRIGINE
     Indication: Bipolar disorder
     Dosage: UNK
     Route: 065
  3. CANNABIS SATIVA SUBSP. INDICA TOP [Suspect]
     Active Substance: CANNABIS SATIVA SUBSP. INDICA TOP
     Indication: Product used for unknown indication
     Dosage: UNK
     Route: 065
  4. DROPERIDOL [Suspect]
     Active Substance: DROPERIDOL
     Indication: Sedative therapy
     Dosage: UNK (2 DOSES)
     Route: 065
  5. MIDAZOLAM [Suspect]
     Active Substance: MIDAZOLAM
     Indication: Sedative therapy
     Dosage: UNK (SINGLE DOSE)
     Route: 065

REACTIONS (12)
  - Psychotic disorder [Unknown]
  - Hallucinations, mixed [Unknown]
  - Cardiac arrest [Unknown]
  - Myocardial infarction [Unknown]
  - Brain injury [Unknown]
  - Respiratory arrest [Unknown]
  - Anosognosia [Unknown]
  - Delusion [Unknown]
  - Drug screen positive [Unknown]
  - Insomnia [Unknown]
  - Aggression [Unknown]
  - Product dose omission issue [Unknown]
